FAERS Safety Report 17983685 (Version 1)
Quarter: 2020Q3

REPORT INFORMATION
  Report Type: Spontaneous
  Country: US (occurrence: US)
  Receive Date: 20200706
  Receipt Date: 20200706
  Transmission Date: 20201103
  Serious: Yes (Death, Hospitalization, Other)
  Sender: FDA-Public Use
  Company Number: US-ALVOGEN-2020-ALVOGEN-108880

PATIENT
  Age: 58 Year
  Sex: Female

DRUGS (3)
  1. APIXABAN [Concomitant]
     Active Substance: APIXABAN
     Indication: PRODUCT USED FOR UNKNOWN INDICATION
  2. PREDNISONE. [Concomitant]
     Active Substance: PREDNISONE
     Indication: PRODUCT USED FOR UNKNOWN INDICATION
  3. FLECAINIDE [Suspect]
     Active Substance: FLECAINIDE
     Indication: PRODUCT USED FOR UNKNOWN INDICATION

REACTIONS (13)
  - Acute kidney injury [Recovered/Resolved]
  - Tachycardia [Recovered/Resolved]
  - Urosepsis [Unknown]
  - Septic shock [Unknown]
  - Mental status changes [Unknown]
  - Myocardial ischaemia [Unknown]
  - Electrocardiogram PR prolongation [Unknown]
  - Cardiac arrest [Fatal]
  - Hypotension [Unknown]
  - Toxicity to various agents [Fatal]
  - Hypokalaemia [Unknown]
  - Hypoxia [Unknown]
  - Bradycardia [Unknown]
